FAERS Safety Report 19352739 (Version 1)
Quarter: 2021Q2

REPORT INFORMATION
  Report Type: Spontaneous
  Country: CN (occurrence: CN)
  Receive Date: 20210601
  Receipt Date: 20210601
  Transmission Date: 20210717
  Serious: Yes (Other)
  Sender: FDA-Public Use
  Company Number: CN-SA-2021SA149764

PATIENT
  Age: 39 Year
  Sex: Female

DRUGS (1)
  1. ELOXATIN [Suspect]
     Active Substance: OXALIPLATIN

REACTIONS (8)
  - Syncope [Recovering/Resolving]
  - Heart rate irregular [Unknown]
  - Dyspnoea [Unknown]
  - Anaphylactic shock [Recovering/Resolving]
  - Suspected product quality issue [Unknown]
  - Hyperhidrosis [Unknown]
  - Hypoaesthesia [Unknown]
  - Pallor [Unknown]

NARRATIVE: CASE EVENT DATE: 20210430
